FAERS Safety Report 21071141 (Version 2)
Quarter: 2022Q4

REPORT INFORMATION
  Report Type: Spontaneous
  Country: JP (occurrence: JP)
  Receive Date: 20220712
  Receipt Date: 20221110
  Transmission Date: 20230113
  Serious: No
  Sender: FDA-Public Use
  Company Number: JP-ELI_LILLY_AND_COMPANY-JP202207001258AA

PATIENT

DRUGS (1)
  1. REYVOW [Suspect]
     Active Substance: LASMIDITAN
     Indication: Migraine
     Dosage: 100 MG, SINGLE
     Route: 048
     Dates: start: 20220615, end: 20220615

REACTIONS (1)
  - Somnolence [Recovered/Resolved]

NARRATIVE: CASE EVENT DATE: 20220615
